FAERS Safety Report 7701297-2 (Version None)
Quarter: 2011Q3

REPORT INFORMATION
  Report Type: 
  Country: None (occurrence: None)
  Receive Date: 20110822
  Receipt Date: 20110810
  Transmission Date: 20111222
  Serious: Yes (Death, Hospitalization)
  Sender: FDA-Public Use
  Company Number: JP-BAYER-200914582BYL

PATIENT
  Age: 77 Year
  Sex: Female
  Weight: 63 kg

DRUGS (7)
  1. NEXAVAR [Suspect]
     Indication: RENAL CELL CARCINOMA
     Route: 048
     Dates: start: 20080912, end: 20081128
  2. PYDOXAL [Concomitant]
     Indication: PROPHYLAXIS
     Dosage: 30 MG (DAILY DOSE), , ORAL
     Route: 048
     Dates: start: 20080919, end: 20091117
  3. BETAMETHASONE [Concomitant]
     Indication: BRAIN OEDEMA
     Dosage: 0.5 MG (DAILY DOSE), , ORAL
     Route: 048
     Dates: start: 20070109, end: 20091117
  4. KERATINAMIN [Concomitant]
     Indication: PROPHYLAXIS
     Dosage: UNK
     Route: 061
     Dates: start: 20080919, end: 20081002
  5. KETOPROFEN [Concomitant]
     Indication: LUNG NEOPLASM
     Dosage: UNK
     Route: 062
     Dates: start: 20080919, end: 20091117
  6. FAMOTIDINE [Concomitant]
     Indication: PROPHYLAXIS
     Dosage: 10 MG (DAILY DOSE), , ORAL
     Route: 048
     Dates: start: 20070109, end: 20091127
  7. NEXAVAR [Suspect]
     Route: 048
     Dates: start: 20090127, end: 20091105

REACTIONS (5)
  - HEPATIC FUNCTION ABNORMAL [None]
  - HYPERTENSION [None]
  - INTERSTITIAL LUNG DISEASE [None]
  - HYPERAMYLASAEMIA [None]
  - LUNG ABSCESS [None]
